FAERS Safety Report 19007698 (Version 1)
Quarter: 2021Q1

REPORT INFORMATION
  Report Type: Spontaneous
  Country: IN (occurrence: IN)
  Receive Date: 20210315
  Receipt Date: 20210315
  Transmission Date: 20210420
  Serious: Yes (Other)
  Sender: FDA-Public Use
  Company Number: IN-SUN PHARMACEUTICAL INDUSTRIES LTD-2021R1-285381

PATIENT
  Age: 34 Year
  Sex: Female

DRUGS (3)
  1. LABETALOL [Suspect]
     Active Substance: LABETALOL\LABETALOL HYDROCHLORIDE
     Indication: PRE-ECLAMPSIA
     Dosage: 200 MILLIGRAM,EVERY SIXTH HOURLY
     Route: 048
  2. CLONIDINE. [Suspect]
     Active Substance: CLONIDINE
     Indication: PRE-ECLAMPSIA
     Dosage: 150 MICROGRAM, TID
     Route: 065
  3. AMLODIPINE [Suspect]
     Active Substance: AMLODIPINE BESYLATE
     Indication: PRE-ECLAMPSIA
     Dosage: 10 MILLIGRAM, BID
     Route: 065

REACTIONS (3)
  - Premature delivery [Unknown]
  - Drug ineffective [Unknown]
  - Exposure during pregnancy [Unknown]
